FAERS Safety Report 8099136-6 (Version None)
Quarter: 2012Q1

REPORT INFORMATION
  Report Type: 
  Country: None (occurrence: None)
  Receive Date: 20120129
  Receipt Date: 20111003
  Transmission Date: 20120608
  Serious: No
  Sender: FDA-Public Use
  Company Number: US-ABBOTT-11P-163-0860515-00

PATIENT
  Age: 72 Year
  Sex: Male

DRUGS (8)
  1. RANITIDINE [Concomitant]
     Indication: HIATUS HERNIA
  2. ACETAMINOPHEN [Concomitant]
     Indication: ARTHRITIS
  3. PREPARATION H [Concomitant]
     Indication: HAEMORRHOIDS
  4. HUMIRA [Suspect]
     Indication: CROHN'S DISEASE
     Dosage: LOADING DOSE
     Dates: start: 20111001, end: 20111001
  5. ANUCORT-HC [Concomitant]
     Indication: HAEMORRHOIDS
  6. TACLONEX [Concomitant]
     Indication: PSORIASIS
  7. ATHLETIC FOOT CREAM [Concomitant]
     Indication: TINEA PEDIS
  8. APRISO [Concomitant]
     Indication: COLITIS

REACTIONS (1)
  - ORAL HERPES [None]
